FAERS Safety Report 6342180-7 (Version None)
Quarter: 2009Q3

REPORT INFORMATION
  Report Type: 
  Country: None (occurrence: None)
  Receive Date: 20090903
  Receipt Date: 20090903
  Transmission Date: 20100115
  Serious: Yes (Other)
  Sender: FDA-Public Use
  Company Number: None

PATIENT
  Sex: Male
  Weight: 97.977 kg

DRUGS (1)
  1. CARTIA XT [Suspect]
     Dosage: PO QD
     Route: 048
     Dates: start: 20081201, end: 20090801

REACTIONS (1)
  - BLOOD PRESSURE ABNORMAL [None]
